FAERS Safety Report 5327689-7 (Version None)
Quarter: 2007Q2

REPORT INFORMATION
  Report Type: 
  Country: None (occurrence: None)
  Receive Date: 20070517
  Receipt Date: 20070511
  Transmission Date: 20071010
  Serious: Yes (Hospitalization)
  Sender: FDA-Public Use
  Company Number: US-MERCK-0704USA05887

PATIENT
  Age: 66 Year
  Sex: Male
  Weight: 84 kg

DRUGS (8)
  1. JANUVIA [Suspect]
     Indication: DIABETES MELLITUS NON-INSULIN-DEPENDENT
     Route: 048
     Dates: start: 20070206, end: 20070421
  2. CORTICOSTEROIDS (UNSPECIFIED) [Concomitant]
     Route: 065
  3. LANTUS [Concomitant]
     Route: 065
  4. VYTORIN [Concomitant]
     Indication: DYSLIPIDAEMIA
     Route: 048
  5. BLINDED THERAPY [Concomitant]
     Route: 065
     Dates: start: 20041110
  6. ATACAND [Concomitant]
     Route: 065
  7. HYDROCHLOROTHIAZIDE [Concomitant]
     Route: 065
  8. NIASPAN [Concomitant]
     Route: 065

REACTIONS (2)
  - HAEMATOMA [None]
  - THROMBOCYTOPENIC PURPURA [None]
